FAERS Safety Report 10632548 (Version 2)
Quarter: 2014Q4

REPORT INFORMATION
  Report Type: Spontaneous
  Country: US (occurrence: US)
  Receive Date: 20141205
  Receipt Date: 20141205
  Transmission Date: 20150529
  Serious: No
  Sender: FDA-Public Use
  Company Number: US-BRISTOL-MYERS SQUIBB COMPANY-21474937

PATIENT
  Age: 80 Year
  Sex: Female

DRUGS (7)
  1. DIGOXIN. [Concomitant]
     Active Substance: DIGOXIN
  2. XANAX [Concomitant]
     Active Substance: ALPRAZOLAM
  3. SIMVASTATIN. [Concomitant]
     Active Substance: SIMVASTATIN
  4. ELIQUIS [Suspect]
     Active Substance: APIXABAN
     Indication: CEREBROVASCULAR ACCIDENT PROPHYLAXIS
     Dosage: 5MG 21MAY14 TO 05JUN14?2.5MG 06JUN14 TO 15AUG14
     Route: 048
     Dates: start: 20140521, end: 20140815
  5. PRILOSEC [Concomitant]
     Active Substance: OMEPRAZOLE MAGNESIUM
  6. ACTONEL [Concomitant]
     Active Substance: RISEDRONATE SODIUM
  7. PROZAC [Concomitant]
     Active Substance: FLUOXETINE HYDROCHLORIDE

REACTIONS (5)
  - Nausea [Recovered/Resolved]
  - Drug intolerance [Recovered/Resolved]
  - Gait disturbance [Recovered/Resolved]
  - Visual impairment [Recovered/Resolved]
  - Muscular weakness [Recovered/Resolved]

NARRATIVE: CASE EVENT DATE: 20140805
